FAERS Safety Report 6231606-5 (Version None)
Quarter: 2009Q2

REPORT INFORMATION
  Report Type: 
  Country: None (occurrence: None)
  Receive Date: 20090616
  Receipt Date: 20090605
  Transmission Date: 20091009
  Serious: Yes (Hospitalization)
  Sender: FDA-Public Use
  Company Number: JP-BAYER-200911900BYL

PATIENT
  Age: 52 Year
  Sex: Female

DRUGS (20)
  1. BETAFERON [Suspect]
     Indication: RELAPSING-REMITTING MULTIPLE SCLEROSIS
     Dosage: TOTAL DAILY DOSE: 4 MIU
     Route: 058
     Dates: start: 20041209, end: 20041213
  2. BETAFERON [Suspect]
     Dosage: TOTAL DAILY DOSE: 8 MIU
     Route: 058
     Dates: start: 20041215, end: 20050105
  3. BETAFERON [Suspect]
     Dosage: TOTAL DAILY DOSE: 4 MIU
     Route: 058
     Dates: start: 20050106, end: 20050410
  4. BETAFERON [Suspect]
     Dosage: TOTAL DAILY DOSE: 8 MIU
     Route: 058
     Dates: start: 20071211, end: 20081029
  5. BETAFERON [Suspect]
     Dosage: TOTAL DAILY DOSE: 8 MIU
     Route: 058
     Dates: start: 20050411
  6. LIPITOR [Concomitant]
     Indication: HYPERLIPIDAEMIA
     Route: 048
     Dates: start: 20050119
  7. CYANOCOBALAMIN [Concomitant]
     Indication: MULTIPLE SCLEROSIS
     Route: 048
     Dates: start: 20041126
  8. ISODINE GARGLE [Concomitant]
     Indication: INFECTION PROPHYLAXIS
     Dosage: 4-5TIMES/DAY
     Route: 049
     Dates: start: 20060823
  9. DEPAKENE [Concomitant]
     Indication: MULTIPLE SCLEROSIS
     Route: 048
     Dates: start: 20060911, end: 20061225
  10. DEPAKENE [Concomitant]
     Route: 048
     Dates: start: 20070611, end: 20071012
  11. SOLU-MEDROL [Concomitant]
     Indication: MULTIPLE SCLEROSIS
     Route: 042
     Dates: start: 20070513, end: 20070515
  12. PREDONINE [Concomitant]
     Indication: MULTIPLE SCLEROSIS
     Dosage: 5-30MG
     Route: 048
     Dates: start: 20070516, end: 20070705
  13. RHEUMATREX [Concomitant]
     Indication: MULTIPLE SCLEROSIS
     Route: 048
     Dates: start: 20070608, end: 20071112
  14. GASTER D [Concomitant]
     Indication: GASTRIC DISORDER
     Route: 048
     Dates: start: 20070611, end: 20070705
  15. LOXONIN [Concomitant]
     Indication: NASOPHARYNGITIS
     Route: 048
     Dates: start: 20070312, end: 20070505
  16. PL [Concomitant]
     Indication: NASOPHARYNGITIS
     Route: 048
     Dates: start: 20070312, end: 20070505
  17. FOLIAMIN [Concomitant]
     Indication: MULTIPLE SCLEROSIS
     Route: 048
     Dates: start: 20071015, end: 20071112
  18. PURSENNID [Concomitant]
     Indication: CONSTIPATION
     Route: 048
     Dates: start: 20070809, end: 20070830
  19. LENDORMIN [Concomitant]
     Indication: MULTIPLE SCLEROSIS
     Route: 048
     Dates: start: 20070809, end: 20070830
  20. MEDROL [Concomitant]
     Indication: MULTIPLE SCLEROSIS
     Dosage: 4-24MG
     Route: 048
     Dates: start: 20070809, end: 20070908

REACTIONS (12)
  - ALANINE AMINOTRANSFERASE INCREASED [None]
  - ARTHRALGIA [None]
  - ASPARTATE AMINOTRANSFERASE INCREASED [None]
  - CONSTIPATION [None]
  - HEADACHE [None]
  - HEPATIC FUNCTION ABNORMAL [None]
  - PLATELET COUNT DECREASED [None]
  - PYREXIA [None]
  - SLEEP DISORDER [None]
  - URINARY RETENTION [None]
  - WHITE BLOOD CELL COUNT DECREASED [None]
  - WHITE BLOOD CELL COUNT INCREASED [None]
